FAERS Safety Report 24292730 (Version 1)
Quarter: 2024Q3

REPORT INFORMATION
  Report Type: Spontaneous
  Country: US (occurrence: None)
  Receive Date: 20240906
  Receipt Date: 20240906
  Transmission Date: 20241017
  Serious: No
  Sender: DOMPE FARMACEUTICI
  Company Number: US-FARMAPROD-202308-202310-3025

PATIENT
  Age: 76 Year
  Sex: Male

DRUGS (19)
  1. OXERVATE [Suspect]
     Active Substance: CENEGERMIN-BKBJ
     Indication: Neurotrophic keratopathy
     Route: 047
     Dates: start: 20231005
  2. REPATHA [Concomitant]
     Active Substance: EVOLOCUMAB
  3. HUMIRA [Concomitant]
     Active Substance: ADALIMUMAB
     Dosage: (CF) 40MG/0.4ML SYRINGE KIT
  4. VASCEPA [Concomitant]
     Active Substance: ICOSAPENT ETHYL
  5. MIRAPEX [Concomitant]
     Active Substance: PRAMIPEXOLE DIHYDROCHLORIDE
  6. ZOLOFT [Concomitant]
     Active Substance: SERTRALINE HYDROCHLORIDE
  7. MYRBETRIQ [Concomitant]
     Active Substance: MIRABEGRON
     Dosage: 24 HOURS.
  8. CYCLOSPORINE [Concomitant]
     Active Substance: CYCLOSPORINE
  9. LOPRESSOR [Concomitant]
     Active Substance: METOPROLOL TARTRATE
  10. MEMANTINE [Concomitant]
     Active Substance: MEMANTINE
  11. ASPIRIN [Concomitant]
     Active Substance: ASPIRIN
  12. LEVOTHYROXINE SODIUM [Concomitant]
     Active Substance: LEVOTHYROXINE SODIUM
  13. GEMTESA [Concomitant]
     Active Substance: VIBEGRON
  14. FINASTERIDE [Concomitant]
     Active Substance: FINASTERIDE
  15. FENOFIBRIC ACID [Concomitant]
     Active Substance: FENOFIBRIC ACID
  16. ELIQUIS [Concomitant]
     Active Substance: APIXABAN
  17. BENAZEPRIL HYDROCHLORIDE [Concomitant]
     Active Substance: BENAZEPRIL HYDROCHLORIDE
  18. CLONAZEPAM [Concomitant]
     Active Substance: CLONAZEPAM
  19. ALLOPURINOL [Concomitant]
     Active Substance: ALLOPURINOL

REACTIONS (4)
  - Eye irritation [Unknown]
  - Ocular discomfort [Unknown]
  - Ocular hyperaemia [Unknown]
  - Eye pain [Unknown]

NARRATIVE: CASE EVENT DATE: 20231001
